FAERS Safety Report 23187971 (Version 3)
Quarter: 2023Q4

REPORT INFORMATION
  Report Type: Spontaneous
  Country: US (occurrence: US)
  Receive Date: 20231115
  Receipt Date: 20231218
  Transmission Date: 20240109
  Serious: No
  Sender: FDA-Public Use
  Company Number: US-PFIZER INC-PV202300163802

PATIENT
  Age: 76 Year
  Sex: Female
  Weight: 60.771 kg

DRUGS (3)
  1. IBRANCE [Suspect]
     Active Substance: PALBOCICLIB
     Indication: Bone cancer
     Dosage: 100 MG, CYCLIC (1 TIME PER DAY WITH OR WITHOUT FOOD FOR 21 DAYS FOLLOWED BY 7 DAYS OFF TREATMENT)
     Route: 048
  2. IBRANCE [Suspect]
     Active Substance: PALBOCICLIB
     Indication: Benign breast neoplasm
     Dosage: 100 MG, 1X/DAY (100/ONCE A DAY FOR 21 DAYS)
     Dates: start: 202211
  3. LETROZOLE [Concomitant]
     Active Substance: LETROZOLE
     Dosage: 25 MG, 1X/DAY
     Dates: start: 202211

REACTIONS (2)
  - Vasculitis [Not Recovered/Not Resolved]
  - Stomatitis [Not Recovered/Not Resolved]
